FAERS Safety Report 4766811-8 (Version None)
Quarter: 2005Q3

REPORT INFORMATION
  Report Type: 
  Country: None (occurrence: None)
  Receive Date: 20050912
  Receipt Date: 20050905
  Transmission Date: 20060218
  Serious: Yes (Death)
  Sender: FDA-Public Use
  Company Number: CH-MERCK-0509CHE00008

PATIENT

DRUGS (1)
  1. CANCIDAS [Suspect]
     Indication: CANDIDIASIS
     Route: 042

REACTIONS (2)
  - BLOOD CULTURE POSITIVE [None]
  - DEATH [None]
